FAERS Safety Report 10143204 (Version 2)
Quarter: 2014Q2

REPORT INFORMATION
  Report Type: Spontaneous
  Country: US (occurrence: US)
  Receive Date: 20140430
  Receipt Date: 20140502
  Transmission Date: 20141212
  Serious: No
  Sender: FDA-Public Use
  Company Number: US-009507513-1404USA015221

PATIENT
  Sex: Female

DRUGS (1)
  1. MAXALT [Suspect]
     Dosage: UNK

REACTIONS (2)
  - Expired product administered [Unknown]
  - No adverse event [Unknown]
